FAERS Safety Report 5635947-1 (Version None)
Quarter: 2008Q1

REPORT INFORMATION
  Report Type: 
  Country: None (occurrence: None)
  Receive Date: 20080224
  Receipt Date: 20080214
  Transmission Date: 20080703
  Serious: Yes (Hospitalization)
  Sender: FDA-Public Use
  Company Number: PHBS2008IT02296

PATIENT
  Age: 85 Year
  Sex: Male

DRUGS (4)
  1. ALLOPURINOL [Suspect]
     Indication: HYPERURICAEMIA
     Dosage: 300 MG/DAY
     Route: 048
     Dates: start: 20071216, end: 20080105
  2. XATRAL [Suspect]
     Indication: BENIGN PROSTATIC HYPERPLASIA
     Route: 048
     Dates: start: 20070617, end: 20080117
  3. DIURESIX [Concomitant]
  4. COMBISARTAN [Suspect]
     Indication: HYPERTENSION
     Route: 048
     Dates: start: 20070622, end: 20080122

REACTIONS (5)
  - BIOPSY SKIN [None]
  - BLOOD IMMUNOGLOBULIN E INCREASED [None]
  - DERMATITIS [None]
  - GAMMA-GLUTAMYLTRANSFERASE INCREASED [None]
  - LICHENOID KERATOSIS [None]
